FAERS Safety Report 15376991 (Version 2)
Quarter: 2018Q4

REPORT INFORMATION
  Report Type: Spontaneous
  Country: JP (occurrence: JP)
  Receive Date: 20180913
  Receipt Date: 20181012
  Transmission Date: 20190204
  Serious: Yes (Other)
  Sender: FDA-Public Use
  Company Number: JP-ROCHE-2183921

PATIENT
  Age: 63 Year
  Sex: Male

DRUGS (3)
  1. LUCENTIS [Suspect]
     Active Substance: RANIBIZUMAB
     Indication: DIABETIC RETINAL OEDEMA
     Dosage: UNK, LEFT EYE
     Route: 031
  2. LUCENTIS [Suspect]
     Active Substance: RANIBIZUMAB
     Dosage: UNK, RIGHT EYE
     Route: 031
  3. AFLIBERCEPT [Concomitant]
     Active Substance: AFLIBERCEPT
     Dosage: TOTAL OF 15 TIMES
     Route: 050

REACTIONS (2)
  - Disease progression [Unknown]
  - Intraocular pressure increased [Unknown]
